FAERS Safety Report 16202231 (Version 1)
Quarter: 2019Q2

REPORT INFORMATION
  Report Type: Spontaneous
  Country: US (occurrence: US)
  Receive Date: 20190416
  Receipt Date: 20190416
  Transmission Date: 20190711
  Serious: No
  Sender: FDA-Public Use
  Company Number: US-009507513-1903USA011791

PATIENT
  Age: 52 Year
  Sex: Female
  Weight: 53.06 kg

DRUGS (2)
  1. LENVIMA [Concomitant]
     Active Substance: LENVATINIB
     Indication: ENDOMETRIAL CANCER
     Dosage: 10 MILLIGRAM DAILY
     Route: 048
     Dates: start: 20190307
  2. KEYTRUDA [Suspect]
     Active Substance: PEMBROLIZUMAB
     Indication: ENDOMETRIAL CANCER
     Dosage: UNK

REACTIONS (4)
  - Product use in unapproved indication [Unknown]
  - Immune system disorder [Unknown]
  - Decreased appetite [Recovering/Resolving]
  - Pyrexia [Recovered/Resolved]

NARRATIVE: CASE EVENT DATE: 201903
